FAERS Safety Report 8023322-4 (Version None)
Quarter: 2012Q1

REPORT INFORMATION
  Report Type: 
  Country: None (occurrence: None)
  Receive Date: 20120104
  Receipt Date: 20111219
  Transmission Date: 20120608
  Serious: Yes (Other)
  Sender: FDA-Public Use
  Company Number: US-ROCHE-1023577

PATIENT
  Sex: Female

DRUGS (3)
  1. POTASSIUM CHLORIDE [Concomitant]
     Indication: CONGENITAL CYSTIC KIDNEY DISEASE
  2. ALLOPURINOL [Concomitant]
     Indication: CONGENITAL CYSTIC KIDNEY DISEASE
  3. NAPROXEN [Suspect]
     Indication: MUSCULOSKELETAL PAIN
     Route: 048

REACTIONS (10)
  - VISION BLURRED [None]
  - RENAL PAIN [None]
  - ALLERGIC RESPIRATORY SYMPTOM [None]
  - TREATMENT FAILURE [None]
  - HYPERSENSITIVITY [None]
  - SKIN EXFOLIATION [None]
  - DYSPNOEA [None]
  - MUSCULOSKELETAL PAIN [None]
  - SKIN REACTION [None]
  - HEADACHE [None]
